FAERS Safety Report 7991150-1 (Version None)
Quarter: 2011Q4

REPORT INFORMATION
  Report Type: 
  Country: None (occurrence: None)
  Receive Date: 20111215
  Receipt Date: 20111206
  Transmission Date: 20120403
  Serious: Yes (Hospitalization)
  Sender: FDA-Public Use
  Company Number: ACO_28381_2011

PATIENT
  Age: 54 Year
  Sex: Male

DRUGS (9)
  1. VALACYCLOVIR HYDROCHLORIDE (VALACICLOVIR HYDROCHLORIDE) [Concomitant]
  2. VITAMIN D2 (ERGOCALCIFEROL) [Concomitant]
  3. AVONEX [Concomitant]
  4. AMPYRA [Suspect]
     Indication: PRODUCT USED FOR UNKNOWN INDICATION
     Dosage: 10 MG, BID, ORAL
     Route: 048
     Dates: start: 20100401, end: 20110101
  5. NEXIUM [Concomitant]
  6. AMLODIPINE BESYLATE [Concomitant]
  7. TIZANIDINE HCL [Concomitant]
  8. ZANAFLEX [Concomitant]
  9. ULORIC [Concomitant]

REACTIONS (1)
  - GOUT [None]
